FAERS Safety Report 10027508 (Version 2)
Quarter: 2014Q3

REPORT INFORMATION
  Report Type: Spontaneous
  Country: AU (occurrence: None)
  Receive Date: 20140318
  Receipt Date: 20140722
  Transmission Date: 20150326
  Serious: Yes (Hospitalization)
  Sender: FDA-Public Use
  Company Number: AUR-APL-2014-02833

PATIENT
  Sex: Female

DRUGS (4)
  1. AURO-QUETIAPINE 200 [Suspect]
     Active Substance: QUETIAPINE
     Indication: PRODUCT USED FOR UNKNOWN INDICATION
  2. AURO-MIRTAZAPINE 15 TABLETS (MIRTAZAPINE) FILM-COATED TABLET, 15MG [Suspect]
     Active Substance: MIRTAZAPINE
     Indication: PRODUCT USED FOR UNKNOWN INDICATION
  3. ELEVIT RDI (MINERALS NOS W/VITAMINS NOS) [Concomitant]
  4. VITAMIN D NOS (VITAMIN D NOS) [Concomitant]

REACTIONS (7)
  - Maternal exposure during pregnancy [None]
  - Caesarean section [None]
  - Gestational hypertension [None]
  - Drug withdrawal syndrome [None]
  - Premature delivery [None]
  - Pregnancy [None]
  - Respiratory distress [None]
